FAERS Safety Report 5193455-9 (Version None)
Quarter: 2006Q4

REPORT INFORMATION
  Report Type: 
  Country: None (occurrence: None)
  Receive Date: 20061228
  Receipt Date: 20060424
  Transmission Date: 20070319
  Serious: No
  Sender: FDA-Public Use
  Company Number: US-GLAXOSMITHKLINE-A0602999A

PATIENT
  Age: 68 Year
  Sex: Female

DRUGS (4)
  1. FLONASE [Suspect]
     Route: 045
     Dates: start: 20020101, end: 20050101
  2. METOPROLOL SUCCINATE [Concomitant]
  3. ARTHRITIS MEDICATION [Concomitant]
  4. ALLERGY MEDICATION [Concomitant]

REACTIONS (2)
  - DRUG HYPERSENSITIVITY [None]
  - RHINORRHOEA [None]
